FAERS Safety Report 15925846 (Version 2)
Quarter: 2019Q1

REPORT INFORMATION
  Report Type: Spontaneous
  Country: US (occurrence: US)
  Receive Date: 20190206
  Receipt Date: 20190214
  Transmission Date: 20190417
  Serious: No
  Sender: FDA-Public Use
  Company Number: US-AMGEN INC.-USASP2019017230

PATIENT
  Age: 57 Year
  Sex: Female
  Weight: 90.25 kg

DRUGS (2)
  1. AIMOVIG [Suspect]
     Active Substance: ERENUMAB-AOOE
     Dosage: 70 MG, QMO
     Route: 065
     Dates: start: 20190128
  2. AIMOVIG [Suspect]
     Active Substance: ERENUMAB-AOOE
     Indication: MIGRAINE PROPHYLAXIS
     Dosage: 70 MG, QMO (UNSUCCESSFUL ATTEMPT)
     Route: 065
     Dates: start: 20190128, end: 20190128

REACTIONS (3)
  - Device malfunction [Unknown]
  - Accidental exposure to product [Unknown]
  - Wrong technique in product usage process [Unknown]

NARRATIVE: CASE EVENT DATE: 20190128
